FAERS Safety Report 7290089-7 (Version None)
Quarter: 2011Q1

REPORT INFORMATION
  Report Type: 
  Country: None (occurrence: None)
  Receive Date: 20110214
  Receipt Date: 20110204
  Transmission Date: 20110831
  Serious: Yes (Hospitalization)
  Sender: FDA-Public Use
  Company Number: MX-BRISTOL-MYERS SQUIBB COMPANY-15135569

PATIENT
  Age: 21 Year
  Sex: Female

DRUGS (4)
  1. ABATACEPT [Suspect]
     Indication: SYSTEMIC LUPUS ERYTHEMATOSUS
     Route: 042
     Dates: start: 20090223, end: 20100126
  2. HYDROXYCHLOROQUINE SULFATE [Concomitant]
     Dates: start: 20081226
  3. PREDNISONE TAB [Suspect]
     Indication: SYSTEMIC LUPUS ERYTHEMATOSUS
     Dates: start: 20090511
  4. MYCOPHENOLATE MOFETIL [Suspect]
     Indication: SYSTEMIC LUPUS ERYTHEMATOSUS
     Dates: start: 20090310

REACTIONS (2)
  - DIARRHOEA [None]
  - DEHYDRATION [None]
